FAERS Safety Report 21101292 (Version 3)
Quarter: 2022Q3

REPORT INFORMATION
  Report Type: Spontaneous
  Country: US (occurrence: US)
  Receive Date: 20220719
  Receipt Date: 20220902
  Transmission Date: 20221026
  Serious: No
  Sender: FDA-Public Use
  Company Number: US-PFIZER INC-202200966413

PATIENT
  Sex: Female

DRUGS (1)
  1. PAXLOVID [Suspect]
     Active Substance: NIRMATRELVIR\RITONAVIR
     Indication: COVID-19 treatment
     Dosage: UNK
     Dates: start: 20220712

REACTIONS (7)
  - COVID-19 [Unknown]
  - Disease recurrence [Unknown]
  - Product taste abnormal [Unknown]
  - Dysgeusia [Unknown]
  - Abdominal discomfort [Unknown]
  - Diarrhoea [Unknown]
  - Ear infection [Unknown]
